FAERS Safety Report 19432619 (Version 1)
Quarter: 2021Q2

REPORT INFORMATION
  Report Type: Other
  Country: US (occurrence: US)
  Receive Date: 20210617
  Receipt Date: 20210617
  Transmission Date: 20210717
  Serious: Yes (Hospitalization, Other)
  Sender: FDA-Public Use
  Company Number: US-DEXPHARM-20210764

PATIENT
  Age: 64 Year
  Sex: Female

DRUGS (5)
  1. NIVOLUMAB [Interacting]
     Active Substance: NIVOLUMAB
  2. OXALIPLATIN. [Concomitant]
     Active Substance: OXALIPLATIN
  3. OMEPRAZOLE. [Suspect]
     Active Substance: OMEPRAZOLE
  4. FOLINIC ACID [Concomitant]
     Active Substance: LEUCOVORIN
  5. FLUOROURACIL. [Concomitant]
     Active Substance: FLUOROURACIL

REACTIONS (1)
  - Drug interaction [Recovered/Resolved]
